FAERS Safety Report 6811999-8 (Version None)
Quarter: 2010Q3

REPORT INFORMATION
  Report Type: 
  Country: None (occurrence: None)
  Receive Date: 20100701
  Receipt Date: 20100603
  Transmission Date: 20110219
  Serious: No
  Sender: FDA-Public Use
  Company Number: US-BAYER-201016275BCC

PATIENT
  Age: 72 Year
  Sex: Female
  Weight: 84 kg

DRUGS (5)
  1. ALEVE (CAPLET) [Suspect]
     Indication: PRODUCT USED FOR UNKNOWN INDICATION
     Dosage: UNIT DOSE: 220 MG
     Route: 048
     Dates: start: 20100501
  2. PLAVIX [Concomitant]
     Route: 065
  3. DILANTIN [Concomitant]
     Route: 065
  4. HYDROCHLOROTHIAZIDE [Concomitant]
     Route: 065
  5. CATAPRES [Concomitant]
     Route: 065

REACTIONS (5)
  - CELLULITIS [None]
  - CHEST DISCOMFORT [None]
  - OEDEMA PERIPHERAL [None]
  - PAIN IN EXTREMITY [None]
  - RASH MACULAR [None]
